FAERS Safety Report 9739139 (Version 2)
Quarter: 2014Q1

REPORT INFORMATION
  Report Type: Spontaneous
  Country: US (occurrence: US)
  Receive Date: 20131209
  Receipt Date: 20140209
  Transmission Date: 20141002
  Serious: No
  Sender: FDA-Public Use
  Company Number: US-ROXANE LABORATORIES, INC.-2013-RO-01898RO

PATIENT
  Age: 54 Year
  Sex: Female

DRUGS (2)
  1. ZALEPLON [Suspect]
     Indication: INSOMNIA
     Dosage: 10 MG
     Route: 048
     Dates: start: 201311
  2. AMBIEN [Concomitant]
     Indication: INSOMNIA

REACTIONS (2)
  - Drug ineffective [Unknown]
  - Product quality issue [Unknown]
